FAERS Safety Report 9030393 (Version 4)
Quarter: 2013Q4

REPORT INFORMATION
  Report Type: Report from Study
  Country: US (occurrence: US)
  Receive Date: 20130122
  Receipt Date: 20131126
  Transmission Date: 20140711
  Serious: No
  Sender: FDA-Public Use
  Company Number: US-VERTEX PHARMACEUTICALS INC.-2013-000894

PATIENT
  Age: 15 Year
  Sex: Male
  Weight: 77.1 kg

DRUGS (1)
  1. VX-770 [Suspect]
     Indication: CYSTIC FIBROSIS
     Dosage: 150 MG, BID
     Dates: start: 20120323

REACTIONS (6)
  - Vomiting [Recovered/Resolved]
  - Productive cough [Unknown]
  - Staphylococcus test positive [Unknown]
  - Nasal congestion [Unknown]
  - Nasopharyngitis [Recovered/Resolved]
  - Headache [Recovered/Resolved]
